FAERS Safety Report 14522545 (Version 2)
Quarter: 2019Q1

REPORT INFORMATION
  Report Type: Report from Study
  Country: US (occurrence: US)
  Receive Date: 20180212
  Receipt Date: 20190215
  Transmission Date: 20190417
  Serious: Yes (Hospitalization, Other)
  Sender: FDA-Public Use
  Company Number: US-AMAG PHARMACEUTICALS, INC.-AMAG201702374

PATIENT

DRUGS (4)
  1. PRILOSEC [Concomitant]
     Active Substance: OMEPRAZOLE MAGNESIUM
     Indication: GASTROOESOPHAGEAL REFLUX DISEASE
  2. MAKENA [Suspect]
     Active Substance: HYDROXYPROGESTERONE CAPROATE
     Indication: PREMATURE DELIVERY
     Dosage: 250 MG/ML, WEEKLY
     Route: 030
     Dates: start: 20170608, end: 20170706
  3. PRENATAL VITAMINS [Concomitant]
     Active Substance: VITAMINS
     Indication: PREGNANCY
     Dosage: UNK, QD
     Route: 065
  4. PRILOSEC [Concomitant]
     Active Substance: OMEPRAZOLE MAGNESIUM
     Indication: HIATUS HERNIA
     Dosage: UNK
     Route: 065

REACTIONS (4)
  - Premature delivery [Recovered/Resolved with Sequelae]
  - Inappropriate schedule of product administration [Unknown]
  - Bacterial vaginosis [Unknown]
  - Pre-eclampsia [Unknown]

NARRATIVE: CASE EVENT DATE: 20170608
